FAERS Safety Report 6445905-5 (Version None)
Quarter: 2009Q4

REPORT INFORMATION
  Report Type: 
  Country: None (occurrence: None)
  Receive Date: 20091119
  Receipt Date: 20081107
  Transmission Date: 20100525
  Serious: No
  Sender: FDA-Public Use
  Company Number: A0755597A

PATIENT
  Age: 37 Year
  Sex: Female

DRUGS (8)
  1. WELLBUTRIN SR [Suspect]
     Indication: DEPRESSION
     Dosage: 150MG PER DAY
     Route: 048
     Dates: start: 20050101, end: 20050101
  2. WELLBUTRIN XL [Suspect]
     Indication: DEPRESSION
     Dosage: 150MG PER DAY
     Route: 048
     Dates: start: 20080801
  3. DIAZEPAM [Concomitant]
  4. REMERON [Concomitant]
  5. HYDROCODONE [Concomitant]
  6. DEMEROL [Concomitant]
  7. METHADONE HCL [Concomitant]
  8. NEXIUM [Concomitant]

REACTIONS (1)
  - DRUG INEFFECTIVE [None]
